FAERS Safety Report 6672951-9 (Version None)
Quarter: 2010Q2

REPORT INFORMATION
  Report Type: 
  Country: None (occurrence: None)
  Receive Date: 20100408
  Receipt Date: 20100407
  Transmission Date: 20101027
  Serious: Yes (Hospitalization, Other)
  Sender: FDA-Public Use
  Company Number: A0851878A

PATIENT
  Age: 60 Year
  Sex: Female
  Weight: 63.6 kg

DRUGS (5)
  1. LAMICTAL CD [Suspect]
     Dosage: 25MG UNKNOWN
     Route: 065
     Dates: start: 20100302, end: 20100315
  2. UNKNOWN [Concomitant]
     Dates: start: 20100308
  3. PAXIL [Concomitant]
  4. LORAZEPAM [Concomitant]
  5. TEMAZEPAM [Concomitant]

REACTIONS (4)
  - DYSPHAGIA [None]
  - HEADACHE [None]
  - RASH [None]
  - STEVENS-JOHNSON SYNDROME [None]
